FAERS Safety Report 14146619 (Version 1)
Quarter: 2017Q4

REPORT INFORMATION
  Report Type: Spontaneous
  Country: US (occurrence: US)
  Receive Date: 20171031
  Receipt Date: 20171031
  Transmission Date: 20180321
  Serious: No
  Sender: FDA-Public Use
  Company Number: US-BAUSCH-BL-2016-022847

PATIENT
  Age: 81 Year
  Sex: Male
  Weight: 72.64 kg

DRUGS (5)
  1. BEPREVE [Suspect]
     Active Substance: BEPOTASTINE BESILATE
     Indication: EYE IRRITATION
     Dosage: ONE DROP IN EACH EYE
     Route: 047
     Dates: start: 201609
  2. COMBIGAN [Concomitant]
     Active Substance: BRIMONIDINE TARTRATE\TIMOLOL MALEATE
     Indication: PRODUCT USED FOR UNKNOWN INDICATION
     Dosage: FOR MANY YEARS
  3. BEPREVE [Suspect]
     Active Substance: BEPOTASTINE BESILATE
     Indication: EYELID IRRITATION
     Dosage: ONE DROP IN EACH EYE
     Route: 047
     Dates: start: 20160915
  4. XALATAN [Concomitant]
     Active Substance: LATANOPROST
     Indication: PRODUCT USED FOR UNKNOWN INDICATION
     Dates: start: 20160915
  5. PRILOSEC [Concomitant]
     Active Substance: OMEPRAZOLE MAGNESIUM
     Indication: GASTROOESOPHAGEAL REFLUX DISEASE

REACTIONS (3)
  - Drug ineffective [Unknown]
  - Eye irritation [Recovered/Resolved]
  - Eyelid irritation [Recovered/Resolved]

NARRATIVE: CASE EVENT DATE: 201609
